FAERS Safety Report 23137087 (Version 2)
Quarter: 2023Q4

REPORT INFORMATION
  Report Type: Report from Study
  Country: US (occurrence: US)
  Receive Date: 20231102
  Receipt Date: 20231127
  Transmission Date: 20240110
  Serious: No
  Sender: FDA-Public Use
  Company Number: US-DECIPHERA PHARMACEUTICALS LLC-2023US000980

PATIENT
  Age: 55 Year
  Sex: Female

DRUGS (2)
  1. QINLOCK [Suspect]
     Active Substance: RIPRETINIB
     Indication: Gastrointestinal stromal tumour
     Dosage: 150 MILLIGRAM, QD
     Route: 048
     Dates: end: 20231019
  2. QINLOCK [Suspect]
     Active Substance: RIPRETINIB
     Dosage: 100 MILLIGRAM, QD
     Route: 048
     Dates: start: 2023, end: 2023

REACTIONS (1)
  - Neoplasm progression [Unknown]
